FAERS Safety Report 21932044 (Version 1)
Quarter: 2023Q1

REPORT INFORMATION
  Report Type: Spontaneous
  Country: FI (occurrence: FI)
  Receive Date: 20230131
  Receipt Date: 20230131
  Transmission Date: 20230418
  Serious: Yes (Life-Threatening)
  Sender: FDA-Public Use
  Company Number: None

PATIENT
  Age: 69 Year
  Sex: Female

DRUGS (5)
  1. BRIDION [Suspect]
     Active Substance: SUGAMMADEX
     Dosage: 200,MG,X1
     Route: 042
     Dates: start: 20230104, end: 20230104
  2. FENTANYL CITRATE [Concomitant]
     Active Substance: FENTANYL CITRATE
  3. NORADRENALIN ABCUR [Concomitant]
  4. ROPIVACAINE [Concomitant]
     Active Substance: ROPIVACAINE
  5. SEVOFLURANE [Concomitant]
     Active Substance: SEVOFLURANE

REACTIONS (7)
  - Electrocardiogram QRS complex abnormal [Recovered/Resolved]
  - Oxygen saturation decreased [Recovered/Resolved]
  - Respiratory tract irritation [Recovered/Resolved]
  - Blood pressure decreased [Recovered/Resolved]
  - Pyrexia [Recovered/Resolved]
  - Cough [Recovered/Resolved]
  - Heart rate decreased [Recovered/Resolved]

NARRATIVE: CASE EVENT DATE: 20230104
